FAERS Safety Report 7306232-7 (Version None)
Quarter: 2011Q1

REPORT INFORMATION
  Report Type: 
  Country: None (occurrence: None)
  Receive Date: 20110210
  Receipt Date: 20110202
  Transmission Date: 20110831
  Serious: Yes (Life-Threatening, Hospitalization, Other)
  Sender: FDA-Public Use
  Company Number: 025162

PATIENT
  Sex: Female

DRUGS (8)
  1. CERTOLIZUMAB PEGOL (CERTOLIZUMAB PEGOL) [Suspect]
     Indication: RHEUMATOID ARTHRITIS
     Dosage: (200 MG 1X/2 WEEKS SUBCUTANEOUS)
     Route: 058
     Dates: start: 20091119, end: 20101228
  2. FOLIC ACID [Concomitant]
  3. ALENDRONATE SODIUM [Concomitant]
  4. TELMISARTAN [Concomitant]
  5. FAMOTIDINE [Concomitant]
  6. METHOTREXATE [Concomitant]
  7. PREDNISOLONE [Concomitant]
  8. ZALTOPROFEN [Concomitant]

REACTIONS (10)
  - THALAMUS HAEMORRHAGE [None]
  - BODY TEMPERATURE INCREASED [None]
  - NEUTROPHIL PERCENTAGE INCREASED [None]
  - CEREBRAL HAEMORRHAGE [None]
  - BLOOD PRESSURE INCREASED [None]
  - MEAN CELL VOLUME INCREASED [None]
  - C-REACTIVE PROTEIN INCREASED [None]
  - WHITE BLOOD CELL COUNT INCREASED [None]
  - ACTIVATED PARTIAL THROMBOPLASTIN TIME PROLONGED [None]
  - RED BLOOD CELL COUNT DECREASED [None]
